FAERS Safety Report 6153759-X (Version None)
Quarter: 2009Q2

REPORT INFORMATION
  Report Type: 
  Country: None (occurrence: None)
  Receive Date: 20090410
  Receipt Date: 20090404
  Transmission Date: 20091009
  Serious: Yes (Death)
  Sender: FDA-Public Use
  Company Number: 2009US000711

PATIENT
  Age: 75 Year
  Sex: Male
  Weight: 95.1 kg

DRUGS (13)
  1. MYCAMINE [Suspect]
     Indication: DRUG USE FOR UNKNOWN INDICATION
     Dates: start: 20061123
  2. PROCRIT [Concomitant]
  3. CEFEPIME [Concomitant]
  4. NOREPINEPHRINE (NOREPINEPHRINE HYDROCHLORIDE) [Concomitant]
  5. PROTONIX [Concomitant]
  6. DIPRIVAN [Concomitant]
  7. PIPERACILLIN/TAZO. (PIPERACILLIN SODIUM, TAZOBACTAM SODIUM) [Concomitant]
  8. ALBUTEROL [Concomitant]
  9. SIMVASTATIN [Concomitant]
  10. WARFARIN SODIUM [Concomitant]
  11. DIGOXIN [Concomitant]
  12. FUROSEMIDE [Concomitant]
  13. POTASSIUM (POTASSIUM) [Concomitant]

REACTIONS (4)
  - HAEMATOCRIT DECREASED [None]
  - HAEMOGLOBIN DECREASED [None]
  - SEPSIS [None]
  - WEIGHT DECREASED [None]
